FAERS Safety Report 6647896-0 (Version None)
Quarter: 2010Q1

REPORT INFORMATION
  Report Type: 
  Country: None (occurrence: None)
  Receive Date: 20100324
  Receipt Date: 20100309
  Transmission Date: 20100710
  Serious: Yes (Hospitalization)
  Sender: FDA-Public Use
  Company Number: US-CELGENEUS-163-21880-10031066

PATIENT
  Sex: Male

DRUGS (4)
  1. REVLIMID [Suspect]
     Indication: MALIGNANT LYMPHOID NEOPLASM
     Route: 048
     Dates: start: 20100101
  2. REVLIMID [Suspect]
     Route: 048
     Dates: start: 20091001, end: 20090101
  3. REVLIMID [Suspect]
     Route: 048
     Dates: start: 20090801, end: 20090101
  4. REVLIMID [Suspect]
     Dosage: 5-20 MG
     Route: 048
     Dates: start: 20081001, end: 20090101

REACTIONS (3)
  - DYSPNOEA [None]
  - LUNG DISORDER [None]
  - MALAISE [None]
